FAERS Safety Report 13849372 (Version 1)
Quarter: 2017Q3

REPORT INFORMATION
  Report Type: Spontaneous
  Country: GB (occurrence: GB)
  Receive Date: 20170809
  Receipt Date: 20170809
  Transmission Date: 20171127
  Serious: Yes (Other)
  Sender: FDA-Public Use
  Company Number: GB-SUN PHARMACEUTICAL INDUSTRIES LTD-2017RR-146980

PATIENT
  Age: 20 Year
  Sex: Male

DRUGS (1)
  1. ISOTRETINOIN [Suspect]
     Active Substance: ISOTRETINOIN
     Indication: PRODUCT USED FOR UNKNOWN INDICATION
     Dosage: 150 MG/KG, UNK
     Route: 065

REACTIONS (18)
  - Psychotic disorder [Unknown]
  - Anxiety [Unknown]
  - Aggression [Unknown]
  - Alopecia [Unknown]
  - Erectile dysfunction [Unknown]
  - Loss of libido [Unknown]
  - Speech disorder [Unknown]
  - Abnormal behaviour [Unknown]
  - Exercise tolerance decreased [Unknown]
  - Depression [Unknown]
  - Negative thoughts [Unknown]
  - Stress [Unknown]
  - Gynaecomastia [Unknown]
  - Fatigue [Unknown]
  - Suicidal ideation [Unknown]
  - Fracture [Unknown]
  - Muscle atrophy [Unknown]
  - Alcohol intolerance [Unknown]
